FAERS Safety Report 7775441-5 (Version None)
Quarter: 2011Q3

REPORT INFORMATION
  Report Type: 
  Country: None (occurrence: None)
  Receive Date: 20110923
  Receipt Date: 20110920
  Transmission Date: 20111222
  Serious: Yes (Death, Other)
  Sender: FDA-Public Use
  Company Number: PHHY2011JP82278

PATIENT
  Age: 81 Year
  Sex: Female

DRUGS (5)
  1. YOKUKAN-SAN [Concomitant]
     Dosage: UNK UKN, UNK
     Route: 048
  2. POLYCARBOPHIL CALCIUM [Concomitant]
     Dosage: UNK UKN, UNK
     Route: 048
  3. EXELON [Suspect]
     Indication: DEMENTIA ALZHEIMER'S TYPE
     Dosage: 4.5 MG DAILY
     Route: 062
     Dates: start: 20110823, end: 20110830
  4. ENSURE [Concomitant]
     Dosage: UNK UKN, UNK
     Route: 048
  5. PRIMPERAN TAB [Concomitant]
     Dosage: UNK UKN, UNK
     Route: 048

REACTIONS (8)
  - LARGE INTESTINE CARCINOMA [None]
  - BLOOD PRESSURE DECREASED [None]
  - APHAGIA [None]
  - PYREXIA [None]
  - NEOPLASM PROGRESSION [None]
  - HAEMATOCHEZIA [None]
  - CONDITION AGGRAVATED [None]
  - DEPRESSED LEVEL OF CONSCIOUSNESS [None]
